FAERS Safety Report 5404745-6 (Version None)
Quarter: 2007Q3

REPORT INFORMATION
  Report Type: 
  Country: None (occurrence: None)
  Receive Date: 20070801
  Receipt Date: 20070719
  Transmission Date: 20080115
  Serious: Yes (Hospitalization)
  Sender: FDA-Public Use
  Company Number: E2020-01435-SPO-JP

PATIENT
  Age: 81 Year
  Sex: Male

DRUGS (3)
  1. ARICEPT [Suspect]
     Indication: DEMENTIA ALZHEIMER'S TYPE
     Dosage: 5 MG, 1 IN 1 D, ORAL; ORAL
     Route: 048
     Dates: end: 20070101
  2. ARICEPT [Suspect]
     Indication: DEMENTIA ALZHEIMER'S TYPE
     Dosage: 5 MG, 1 IN 1 D, ORAL; ORAL
     Route: 048
     Dates: start: 20070101
  3. PERSELIN (ALLYLESTRENOL) [Concomitant]

REACTIONS (3)
  - PAIN [None]
  - PEMPHIGUS [None]
  - SKIN EROSION [None]
